FAERS Safety Report 5692246-X (Version None)
Quarter: 2008Q2

REPORT INFORMATION
  Report Type: 
  Country: None (occurrence: None)
  Receive Date: 20080402
  Receipt Date: 20080320
  Transmission Date: 20081010
  Serious: Yes (Hospitalization)
  Sender: FDA-Public Use
  Company Number: GB-PFIZER INC-2008026717

PATIENT
  Age: 86 Year
  Sex: Male

DRUGS (9)
  1. PREDNISOLONE [Suspect]
  2. ACETYLSALICYLIC ACID SRT [Suspect]
  3. ATENOLOL [Suspect]
  4. CETOSTEARYL ALCOHOL [Suspect]
  5. BENDROFLUMETHIAZIDE [Suspect]
  6. CHLORPHENIRAMINE MALEATE [Suspect]
  7. DIGOXIN [Suspect]
  8. LACTULOSE [Suspect]
     Route: 048
  9. URSODIOL [Suspect]

REACTIONS (1)
  - JAUNDICE [None]
